FAERS Safety Report 18660092 (Version 1)
Quarter: 2020Q4

REPORT INFORMATION
  Report Type: Spontaneous
  Country: US (occurrence: US)
  Receive Date: 20201223
  Receipt Date: 20201223
  Transmission Date: 20210114
  Serious: Yes (Other)
  Sender: FDA-Public Use
  Company Number: US-SLATE RUN PHARMACEUTICALS-20US000348

PATIENT

DRUGS (2)
  1. VANCOMYCIN HYDROCHLORIDE USP [Suspect]
     Active Substance: VANCOMYCIN HYDROCHLORIDE
     Indication: STAPHYLOCOCCAL INFECTION
     Route: 065
  2. FLUCONAZOLE. [Concomitant]
     Active Substance: FLUCONAZOLE
     Indication: COCCIDIOIDOMYCOSIS
     Dosage: 800 MILLIGRAM
     Route: 065

REACTIONS (6)
  - Haptoglobin increased [Unknown]
  - Serum ferritin increased [Unknown]
  - Chronic hepatitis C [Unknown]
  - Acute kidney injury [Recovered/Resolved]
  - Blood iron decreased [Unknown]
  - Iron binding capacity total decreased [Unknown]
